FAERS Safety Report 14099960 (Version 1)
Quarter: 2017Q4

REPORT INFORMATION
  Report Type: Spontaneous
  Country: US (occurrence: US)
  Receive Date: 20171017
  Receipt Date: 20171017
  Transmission Date: 20180321
  Serious: Yes (Hospitalization)
  Sender: FDA-Public Use
  Company Number: US-CELGENEUS-USA-20171003479

PATIENT
  Sex: Female
  Weight: 64.92 kg

DRUGS (2)
  1. REVLIMID [Suspect]
     Active Substance: LENALIDOMIDE
     Dosage: 10 MILLIGRAM
     Route: 048
     Dates: start: 201405
  2. REVLIMID [Suspect]
     Active Substance: LENALIDOMIDE
     Indication: MYELOID LEUKAEMIA
     Dosage: 25 MILLIGRAM
     Route: 048
     Dates: start: 201307

REACTIONS (1)
  - Cholelithiasis [Not Recovered/Not Resolved]
